FAERS Safety Report 8162154-3 (Version None)
Quarter: 2012Q1

REPORT INFORMATION
  Report Type: 
  Country: None (occurrence: None)
  Receive Date: 20120224
  Receipt Date: 20110922
  Transmission Date: 20120608
  Serious: Yes (Hospitalization)
  Sender: FDA-Public Use
  Company Number: US-BRISTOL-MYERS SQUIBB COMPANY-16038077

PATIENT
  Age: 57 Year
  Sex: Male

DRUGS (3)
  1. METFORMIN HCL [Suspect]
  2. GLYBURIDE [Concomitant]
  3. LISINOPRIL [Concomitant]

REACTIONS (1)
  - ABDOMINAL PAIN [None]
